FAERS Safety Report 6236387-7 (Version None)
Quarter: 2009Q2

REPORT INFORMATION
  Report Type: 
  Country: None (occurrence: None)
  Receive Date: 20090619
  Receipt Date: 20090612
  Transmission Date: 20091009
  Serious: Yes (Disabling)
  Sender: FDA-Public Use
  Company Number: IE-ASTRAZENECA-2008GB02342

PATIENT
  Age: 516 Month
  Sex: Female
  Weight: 55 kg

DRUGS (3)
  1. NOLVADEX [Suspect]
     Indication: BREAST NEOPLASM
     Route: 048
     Dates: start: 20050101, end: 20090101
  2. NOLVADEX [Suspect]
     Route: 048
     Dates: start: 20090101
  3. TEGRETOL [Concomitant]
     Indication: EPILEPSY
     Route: 048
     Dates: start: 19970101

REACTIONS (5)
  - ARTHRALGIA [None]
  - BACK PAIN [None]
  - MUSCLE SPASMS [None]
  - MUSCULOSKELETAL STIFFNESS [None]
  - MYALGIA [None]
